FAERS Safety Report 10449342 (Version 1)
Quarter: 2014Q3

REPORT INFORMATION
  Report Type: Spontaneous
  Country: CH (occurrence: None)
  Receive Date: 20140910
  Receipt Date: 20140910
  Transmission Date: 20150326
  Serious: Yes (Other)
  Sender: FDA-Public Use
  Company Number: 3011632-2014-00003

PATIENT
  Sex: Male

DRUGS (1)
  1. ASBA FLUOR GEL 0.15% FLUORIDE [Suspect]
     Active Substance: SODIUM FLUORIDE
     Indication: DENTAL DISORDER PROPHYLAXIS
     Dosage: STANDARD FLUORIDE TRAY
     Dates: start: 20140818

REACTIONS (3)
  - Plicated tongue [None]
  - Swollen tongue [None]
  - Hypersensitivity [None]

NARRATIVE: CASE EVENT DATE: 20140818
